FAERS Safety Report 10408468 (Version 4)
Quarter: 2021Q2

REPORT INFORMATION
  Report Type: Spontaneous
  Country: GB (occurrence: GB)
  Receive Date: 20140826
  Receipt Date: 20210507
  Transmission Date: 20210716
  Serious: Yes (Life-Threatening, Hospitalization, Other)
  Sender: FDA-Public Use
  Company Number: GB-PERRIGO-14GB008186

PATIENT

DRUGS (6)
  1. FLUOXETINE [Concomitant]
     Active Substance: FLUOXETINE HYDROCHLORIDE
     Indication: PRODUCT USED FOR UNKNOWN INDICATION
     Route: 065
  2. CEFRADINE [Concomitant]
     Active Substance: CEPHRADINE
     Indication: PRODUCT USED FOR UNKNOWN INDICATION
     Route: 065
  3. METRONIDAZOLE. [Concomitant]
     Active Substance: METRONIDAZOLE
     Indication: PYELONEPHRITIS
     Dosage: UNK
     Route: 065
  4. COCODAMOL [Suspect]
     Active Substance: ACETAMINOPHEN\CODEINE PHOSPHATE
     Indication: PELVIC PAIN
     Dosage: UNK
     Route: 048
  5. ENOXAPARIN [Concomitant]
     Active Substance: ENOXAPARIN
     Indication: PRODUCT USED FOR UNKNOWN INDICATION
     Dosage: UNK
     Route: 065
  6. PARACETAMOL [Suspect]
     Active Substance: ACETAMINOPHEN
     Indication: PELVIC PAIN
     Dosage: UP TO FOUR DOSES PER DAY
     Route: 048

REACTIONS (14)
  - Depressed level of consciousness [Unknown]
  - Consciousness fluctuating [Unknown]
  - Feeling guilty [Unknown]
  - Maternal exposure during pregnancy [Recovered/Resolved]
  - Premature labour [Unknown]
  - Malaise [Recovered/Resolved]
  - Asthenopia [Unknown]
  - Hepatic failure [Recovered/Resolved]
  - Hepatotoxicity [Recovered/Resolved with Sequelae]
  - Asthenia [Unknown]
  - Accidental overdose [Recovered/Resolved]
  - Fear [Unknown]
  - Caesarean section [Unknown]
  - Live birth [Unknown]
